FAERS Safety Report 17222186 (Version 1)
Quarter: 2020Q1

REPORT INFORMATION
  Report Type: Spontaneous
  Country: DE (occurrence: DE)
  Receive Date: 20200101
  Receipt Date: 20200101
  Transmission Date: 20200409
  Serious: Yes (Hospitalization)
  Sender: FDA-Public Use
  Company Number: DE-TEVA-2019-DE-1159199

PATIENT
  Age: 35 Year
  Sex: Female
  Weight: 54 kg

DRUGS (2)
  1. DULOXETINE. [Suspect]
     Active Substance: DULOXETINE
     Dosage: 30 MG
     Route: 048
  2. PROPIVERIN [Concomitant]
     Active Substance: PROPIVERINE
     Dosage: 30 MG
     Route: 048

REACTIONS (3)
  - Syncope [Unknown]
  - Dizziness [Unknown]
  - Hyperventilation [Unknown]
